FAERS Safety Report 24034539 (Version 1)
Quarter: 2024Q3

REPORT INFORMATION
  Report Type: Spontaneous
  Country: GB (occurrence: GB)
  Receive Date: 20240701
  Receipt Date: 20240701
  Transmission Date: 20241017
  Serious: Yes (Other)
  Sender: MYLAN
  Company Number: GB-MHRA-TPP5152109C7408828YC1716544255044

PATIENT
  Age: 66 Year
  Sex: Male
  Weight: 110 kg

DRUGS (7)
  1. VENLAFAXINE [Suspect]
     Active Substance: VENLAFAXINE HYDROCHLORIDE
     Indication: Ill-defined disorder
     Dosage: 75 MILLIGRAM
     Route: 065
     Dates: start: 20240524
  2. HYDROCORTISONE\MICONAZOLE NITRATE [Concomitant]
     Active Substance: HYDROCORTISONE\MICONAZOLE NITRATE
     Indication: Ill-defined disorder
     Dosage: 1 DOSAGE FORM, BID (APPLY TWICE DAILY TO AFFECTED AREA FOR UP TO 7 )
     Route: 065
     Dates: start: 20240304, end: 20240314
  3. LANSOPRAZOLE [Concomitant]
     Active Substance: LANSOPRAZOLE
     Indication: Ill-defined disorder
     Dosage: 1 DOSAGE FORM, QD (ONE TO BE TAKEN EACH MORNING)
     Route: 065
     Dates: start: 20220822
  4. ALBUTEROL [Concomitant]
     Active Substance: ALBUTEROL
     Indication: Ill-defined disorder
     Dosage: 2 DOSAGE FORM (INHALE 2 DOSES AS NEEDED)
     Route: 055
     Dates: start: 20220822
  5. ATENOLOL [Concomitant]
     Active Substance: ATENOLOL
     Indication: Ill-defined disorder
     Dosage: 1 DOSAGE FORM, QD (ONE TO BE TAKEN DAILY)
     Route: 065
     Dates: start: 20230220
  6. ACETAMINOPHEN\CODEINE PHOSPHATE [Concomitant]
     Active Substance: ACETAMINOPHEN\CODEINE PHOSPHATE
     Indication: Ill-defined disorder
     Dosage: QID (TAKE 1 OR 2 4 TIMES/DAY)
     Route: 065
     Dates: start: 20230324
  7. Adcal [Concomitant]
     Indication: Ill-defined disorder
     Dosage: 1 DOSAGE FORM, BID (TAKE ONE TWICE DAILY)
     Route: 065
     Dates: start: 20230911

REACTIONS (1)
  - Violence-related symptom [Recovered/Resolved]

NARRATIVE: CASE EVENT DATE: 20240524
